FAERS Safety Report 8887571 (Version 2)
Quarter: 2013Q2

REPORT INFORMATION
  Report Type: Spontaneous
  Country: CZ (occurrence: None)
  Receive Date: 20121031
  Receipt Date: 20130603
  Transmission Date: 20140414
  Serious: Yes (Other)
  Sender: FDA-Public Use
  Company Number: CZ-025177

PATIENT
  Sex: 0

DRUGS (3)
  1. BUSULFAN [Suspect]
     Indication: GASTROINTESTINAL TOXICITY
     Route: 048
  2. FLUDARABINE [Suspect]
     Indication: GASTROINTESTINAL TOXICITY
  3. ANTITHYMOCYTE IMMUNOGLOBULIN [Suspect]
     Indication: GASTROINTESTINAL TOXICITY

REACTIONS (1)
  - Gastrointestinal toxicity [None]
